FAERS Safety Report 25883680 (Version 1)
Quarter: 2025Q4

REPORT INFORMATION
  Report Type: Spontaneous
  Country: EU (occurrence: EU)
  Receive Date: 20251006
  Receipt Date: 20251006
  Transmission Date: 20260117
  Serious: Yes (Hospitalization, Other)
  Sender: ZYDUS PHARM
  Company Number: None

PATIENT

DRUGS (8)
  1. AZITHROMYCIN [Suspect]
     Active Substance: AZITHROMYCIN
     Indication: COVID-19
     Dosage: 6 MILLIGRAM
     Route: 065
     Dates: start: 20201021, end: 20201027
  2. CEFTRIAXONE [Suspect]
     Active Substance: CEFTRIAXONE
     Indication: COVID-19
     Dosage: UNK
     Route: 065
     Dates: start: 20201021, end: 20201027
  3. DEXAMETHASONE [Concomitant]
     Active Substance: DEXAMETHASONE
     Indication: COVID-19
     Dosage: 6 MILLIGRAM, QD
     Route: 065
     Dates: start: 20201023, end: 20201101
  4. DEXAMETHASONE [Concomitant]
     Active Substance: DEXAMETHASONE
     Dosage: 10 MG TWICE DAILY (0.3 MG/KG/DAY OF DEXAMETHASONE FOR 20 DAYS [1.9 MG/KG/DAY PREDNISONE EQUIVALENT]
     Route: 065
     Dates: start: 20201101, end: 20201121
  5. METHYLPREDNISOLONE [Concomitant]
     Active Substance: METHYLPREDNISOLONE
     Indication: COVID-19
     Dosage: 120 MILLIGRAM 1 TOTAL
     Route: 065
     Dates: start: 20201023, end: 202010
  6. ENOXAPARIN SODIUM [Concomitant]
     Active Substance: ENOXAPARIN SODIUM
     Indication: Product used for unknown indication
     Dosage: 0.8 ML X TWO PER 24 H SUBCUTANEOUSLY
     Route: 058
     Dates: start: 202010, end: 202010
  7. OXYGEN [Concomitant]
     Active Substance: OXYGEN
     Indication: COVID-19
     Dosage: 6 LITER EVERY 1 MIN
     Route: 065
     Dates: start: 202010
  8. OXYGEN [Concomitant]
     Active Substance: OXYGEN
     Dosage: 15 LITER EVERY 1 MIN
     Route: 065
     Dates: start: 202010

REACTIONS (3)
  - Metabolic alkalosis [Unknown]
  - Multiple organ dysfunction syndrome [Unknown]
  - Off label use [Unknown]

NARRATIVE: CASE EVENT DATE: 20201001
